FAERS Safety Report 8484882-2 (Version None)
Quarter: 2012Q3

REPORT INFORMATION
  Report Type: 
  Country: None (occurrence: None)
  Receive Date: 20120703
  Receipt Date: 20120621
  Transmission Date: 20120928
  Serious: Yes (Other)
  Sender: FDA-Public Use
  Company Number: JP-VERTEX PHARMACEUTICALS INC.-AE-2012-007856

PATIENT
  Age: 53 Year
  Sex: Male

DRUGS (10)
  1. LOXOPROFEN [Concomitant]
     Route: 048
     Dates: start: 20120307
  2. REBETOL [Concomitant]
     Route: 048
     Dates: start: 20120307, end: 20120321
  3. PEGINTERFERON ALFA-2B [Concomitant]
     Route: 058
     Dates: start: 20120307
  4. REBETOL [Concomitant]
     Route: 048
     Dates: start: 20120322, end: 20120520
  5. NEOPHAGEN [Concomitant]
     Dates: start: 20120524, end: 20120524
  6. TELAVIC (TELAPREVIR) [Suspect]
     Indication: HEPATITIS C
     Route: 048
     Dates: start: 20120307, end: 20120520
  7. NEOMALLERMIN [Concomitant]
     Route: 048
     Dates: start: 20120315
  8. REBETOL [Concomitant]
     Route: 048
     Dates: start: 20120528
  9. MUCOSTA [Concomitant]
     Route: 048
     Dates: start: 20120307
  10. FAMOTIDINE [Concomitant]
     Route: 048
     Dates: start: 20120524

REACTIONS (1)
  - HEPATIC FUNCTION ABNORMAL [None]
